FAERS Safety Report 10625192 (Version 1)
Quarter: 2014Q4

REPORT INFORMATION
  Report Type: Spontaneous
  Country: US (occurrence: None)
  Receive Date: 20141202
  Receipt Date: 20141202
  Transmission Date: 20150529
  Serious: Yes (Other)
  Sender: FDA-Public Use
  Company Number: PT14-421-AE

PATIENT
  Age: 69 Year
  Sex: Female
  Weight: 60.33 kg

DRUGS (2)
  1. PROZAC [Concomitant]
     Active Substance: FLUOXETINE HYDROCHLORIDE
  2. FLECAINIDE ACETATE. [Suspect]
     Active Substance: FLECAINIDE ACETATE
     Indication: SUPRAVENTRICULAR TACHYCARDIA
     Dosage: 1 TABLET
     Route: 048
     Dates: start: 2011

REACTIONS (2)
  - Urticaria [None]
  - Erythema [None]

NARRATIVE: CASE EVENT DATE: 20141029
